FAERS Safety Report 20655135 (Version 3)
Quarter: 2023Q1

REPORT INFORMATION
  Report Type: Report from Study
  Country: US (occurrence: US)
  Receive Date: 20220330
  Receipt Date: 20230215
  Transmission Date: 20230418
  Serious: Yes (Other)
  Sender: FDA-Public Use
  Company Number: US-ABBVIE-22K-163-4336633-00

PATIENT
  Sex: Male
  Weight: 104.32 kg

DRUGS (3)
  1. IMBRUVICA [Suspect]
     Active Substance: IBRUTINIB
     Indication: Chronic lymphocytic leukaemia
     Dosage: 140 MILLIGRAM
     Route: 048
  2. IMBRUVICA [Suspect]
     Active Substance: IBRUTINIB
     Indication: Chronic lymphocytic leukaemia
     Dosage: START DATE TEXT: 1-2 YEARS AGO
     Route: 048
     Dates: start: 20210506
  3. COVID-19 vaccine [Concomitant]
     Indication: COVID-19 immunisation
     Dosage: COVID VACCINE?FREQUENCY-ONE IN ONCE
     Route: 030

REACTIONS (8)
  - Loss of consciousness [Recovered/Resolved]
  - Nasopharyngitis [Recovering/Resolving]
  - Muscle contractions involuntary [Unknown]
  - Musculoskeletal disorder [Recovering/Resolving]
  - Dehydration [Unknown]
  - Muscle spasms [Unknown]
  - Hypertension [Unknown]
  - Fall [Unknown]
